FAERS Safety Report 12738699 (Version 1)
Quarter: 2016Q3

REPORT INFORMATION
  Report Type: Spontaneous
  Country: US (occurrence: US)
  Receive Date: 20160912
  Receipt Date: 20160912
  Transmission Date: 20161109
  Serious: Yes (Other)
  Sender: FDA-Public Use
  Company Number: None

PATIENT
  Age: 68 Year
  Sex: Male
  Weight: 126.9 kg

DRUGS (15)
  1. RITUXAN INFUSION [Concomitant]
  2. STOOL SOFTENER [Suspect]
     Active Substance: DOCUSATE CALCIUM
     Indication: CONSTIPATION
     Route: 048
     Dates: start: 20120401, end: 20160912
  3. BACTRIM DS [Concomitant]
     Active Substance: SULFAMETHOXAZOLE\TRIMETHOPRIM
  4. KRILL OIL [Concomitant]
     Active Substance: DIETARY SUPPLEMENT
  5. VITAMIN D3 [Concomitant]
     Active Substance: CHOLECALCIFEROL
  6. CELLCEPT [Concomitant]
     Active Substance: MYCOPHENOLATE MOFETIL\MYCOPHENOLATE MOFETIL HYDROCHLORIDE
  7. SYMBICORT [Concomitant]
     Active Substance: BUDESONIDE\FORMOTEROL FUMARATE DIHYDRATE
  8. ALEVE [Concomitant]
     Active Substance: NAPROXEN SODIUM
  9. BACLOFEN. [Concomitant]
     Active Substance: BACLOFEN
  10. CPAP [Concomitant]
     Active Substance: DEVICE
  11. CVS EXTRA STRENGTH STOOL SOFTENER [Concomitant]
  12. MS CONTIN [Concomitant]
     Active Substance: MORPHINE SULFATE
  13. OXYCODONE HYDROCHLORIDE. [Concomitant]
     Active Substance: OXYCODONE HYDROCHLORIDE
  14. TORSEMIDE. [Concomitant]
     Active Substance: TORSEMIDE
  15. FLUTICASONE [Concomitant]
     Active Substance: FLUTICASONE\FLUTICASONE PROPIONATE

REACTIONS (4)
  - Dizziness [None]
  - Hyperhidrosis [None]
  - Vomiting [None]
  - Nausea [None]

NARRATIVE: CASE EVENT DATE: 20160912
